FAERS Safety Report 9496953 (Version 1)
Quarter: 2013Q3

REPORT INFORMATION
  Report Type: Spontaneous
  Country: US (occurrence: US)
  Receive Date: 20130904
  Receipt Date: 20130904
  Transmission Date: 20140515
  Serious: No
  Sender: FDA-Public Use
  Company Number: US-AMGEN-USASP2013055471

PATIENT
  Age: 56 Year
  Sex: Female

DRUGS (2)
  1. ENBREL [Suspect]
     Indication: PSORIATIC ARTHROPATHY
     Dosage: 25 MG, QWK (AS NEEDED TO CONTROL SYMPTOMS)
     Route: 065
     Dates: start: 20010501, end: 201304
  2. ENBREL [Suspect]
     Indication: PSORIASIS

REACTIONS (1)
  - Guttate psoriasis [Not Recovered/Not Resolved]
